FAERS Safety Report 19004985 (Version 1)
Quarter: 2021Q1

REPORT INFORMATION
  Report Type: Spontaneous
  Country: CA (occurrence: CA)
  Receive Date: 20210313
  Receipt Date: 20210313
  Transmission Date: 20210420
  Serious: Yes (Other)
  Sender: FDA-Public Use
  Company Number: CA-B.I. PHARMACEUTICALS,INC./RIDGEFIELD-2021-BI-088521

PATIENT
  Age: 15 Year
  Sex: Male
  Weight: 127 kg

DRUGS (29)
  1. OLANZAPINE. [Suspect]
     Active Substance: OLANZAPINE
     Indication: INTELLECTUAL DISABILITY
  2. QUETIAPINE FUMARATE. [Suspect]
     Active Substance: QUETIAPINE FUMARATE
     Indication: BEHAVIOUR DISORDER
     Route: 048
  3. QUETIAPINE FUMARATE. [Suspect]
     Active Substance: QUETIAPINE FUMARATE
     Indication: AUTISM SPECTRUM DISORDER
     Route: 048
  4. SERTRALINE [Suspect]
     Active Substance: SERTRALINE HYDROCHLORIDE
     Indication: AUTISM SPECTRUM DISORDER
  5. ZIPRASIDONE. [Concomitant]
     Active Substance: ZIPRASIDONE
     Indication: INTELLECTUAL DISABILITY
  6. QUETIAPINE FUMARATE. [Suspect]
     Active Substance: QUETIAPINE FUMARATE
     Route: 048
  7. QUETIAPINE FUMARATE. [Suspect]
     Active Substance: QUETIAPINE FUMARATE
     Route: 048
  8. SERTRALINE [Suspect]
     Active Substance: SERTRALINE HYDROCHLORIDE
  9. SERTRALINE [Suspect]
     Active Substance: SERTRALINE HYDROCHLORIDE
  10. CATAPRES [Suspect]
     Active Substance: CLONIDINE HYDROCHLORIDE
     Indication: AUTISM SPECTRUM DISORDER
  11. CATAPRES [Suspect]
     Active Substance: CLONIDINE HYDROCHLORIDE
  12. QUETIAPINE FUMARATE. [Suspect]
     Active Substance: QUETIAPINE FUMARATE
  13. SERTRALINE [Suspect]
     Active Substance: SERTRALINE HYDROCHLORIDE
  14. OLANZAPINE. [Suspect]
     Active Substance: OLANZAPINE
     Indication: BEHAVIOUR DISORDER
  15. QUETIAPINE FUMARATE. [Suspect]
     Active Substance: QUETIAPINE FUMARATE
     Route: 048
  16. CATAPRES [Suspect]
     Active Substance: CLONIDINE HYDROCHLORIDE
  17. SERTRALINE [Suspect]
     Active Substance: SERTRALINE HYDROCHLORIDE
     Indication: INTELLECTUAL DISABILITY
  18. SERTRALINE HYDROCHLORIDE. [Suspect]
     Active Substance: SERTRALINE HYDROCHLORIDE
     Indication: BEHAVIOUR DISORDER
  19. CATAPRES [Suspect]
     Active Substance: CLONIDINE HYDROCHLORIDE
     Indication: INTELLECTUAL DISABILITY
  20. OLANZAPINE. [Suspect]
     Active Substance: OLANZAPINE
  21. QUETIAPINE FUMARATE. [Suspect]
     Active Substance: QUETIAPINE FUMARATE
     Route: 048
  22. QUETIAPINE FUMARATE. [Suspect]
     Active Substance: QUETIAPINE FUMARATE
     Route: 048
  23. ZIPRASIDONE. [Concomitant]
     Active Substance: ZIPRASIDONE
     Indication: AUTISM SPECTRUM DISORDER
  24. LAMOTRIGINE. [Suspect]
     Active Substance: LAMOTRIGINE
     Indication: BEHAVIOUR DISORDER
  25. OLANZAPINE. [Suspect]
     Active Substance: OLANZAPINE
  26. QUETIAPINE FUMARATE. [Suspect]
     Active Substance: QUETIAPINE FUMARATE
     Indication: INTELLECTUAL DISABILITY
     Route: 048
  27. CATAPRES [Suspect]
     Active Substance: CLONIDINE HYDROCHLORIDE
     Indication: BEHAVIOUR DISORDER
  28. CATAPRES [Suspect]
     Active Substance: CLONIDINE HYDROCHLORIDE
  29. SERTRALINE [Suspect]
     Active Substance: SERTRALINE HYDROCHLORIDE
     Indication: BEHAVIOUR DISORDER

REACTIONS (6)
  - Obesity [Recovered/Resolved]
  - Product use issue [Recovered/Resolved]
  - Aggression [Recovered/Resolved]
  - Blood prolactin increased [Recovered/Resolved]
  - Product prescribing issue [Recovered/Resolved]
  - Overweight [Recovered/Resolved]
